FAERS Safety Report 13961367 (Version 2)
Quarter: 2024Q4

REPORT INFORMATION
  Report Type: Spontaneous
  Country: US (occurrence: US)
  Receive Date: 20170912
  Receipt Date: 20241202
  Transmission Date: 20250114
  Serious: Yes (Other)
  Sender: BAYER HEALTHCARE PHARMACEUTICALS INC.
  Company Number: US-BAYER-2017-173414

PATIENT

DRUGS (1)
  1. GADOPENTETATE DIMEGLUMINE [Suspect]
     Active Substance: GADOPENTETATE DIMEGLUMINE
     Indication: Magnetic resonance imaging
     Dosage: UNK, ONCE
     Dates: start: 2017, end: 2017

REACTIONS (18)
  - Contrast media reaction [Recovering/Resolving]
  - Muscle twitching [Recovering/Resolving]
  - Tremor [Recovering/Resolving]
  - Paraesthesia [Recovering/Resolving]
  - Visual impairment [Recovering/Resolving]
  - Temperature intolerance [Recovering/Resolving]
  - Heart rate irregular [Recovering/Resolving]
  - Hypertension [Recovering/Resolving]
  - Palpitations [Recovering/Resolving]
  - Tremor [Recovering/Resolving]
  - Muscle twitching [Recovering/Resolving]
  - Dyskinesia [Recovering/Resolving]
  - Chills [Recovering/Resolving]
  - Metamorphopsia [Recovering/Resolving]
  - Product use complaint [Recovering/Resolving]
  - Dysuria [Recovering/Resolving]
  - Hypoaesthesia [Recovering/Resolving]
  - Weight decreased [Recovering/Resolving]

NARRATIVE: CASE EVENT DATE: 20170101
